FAERS Safety Report 8349101-6 (Version None)
Quarter: 2012Q2

REPORT INFORMATION
  Report Type: 
  Country: None (occurrence: None)
  Receive Date: 20120508
  Receipt Date: 20120426
  Transmission Date: 20120825
  Serious: Yes (Hospitalization, Other)
  Sender: FDA-Public Use
  Company Number: VAL_00754_2012

PATIENT
  Age: 70 Year
  Sex: Female

DRUGS (1)
  1. CARBAMAZEPINE [Suspect]
     Indication: MOOD SWINGS
     Dosage: (200 MG, /DAY)

REACTIONS (10)
  - PLATELET COUNT DECREASED [None]
  - ALANINE AMINOTRANSFERASE INCREASED [None]
  - RENAL IMPAIRMENT [None]
  - HYPOMANIA [None]
  - VIRAL INFECTION [None]
  - DRUG RASH WITH EOSINOPHILIA AND SYSTEMIC SYMPTOMS [None]
  - ASPARTATE AMINOTRANSFERASE INCREASED [None]
  - INSOMNIA [None]
  - TUBULOINTERSTITIAL NEPHRITIS [None]
  - DELIRIUM [None]
